FAERS Safety Report 17040248 (Version 6)
Quarter: 2021Q1

REPORT INFORMATION
  Report Type: Report from Study
  Country: CA (occurrence: CA)
  Receive Date: 20191116
  Receipt Date: 20210306
  Transmission Date: 20210419
  Serious: Yes (Other)
  Sender: FDA-Public Use
  Company Number: PHHY2013CA133691

PATIENT
  Age: 27 Year
  Sex: Female

DRUGS (21)
  1. SANDOSTATIN LAR DEPOT [Suspect]
     Active Substance: OCTREOTIDE ACETATE
     Dosage: 30 MG, Q4W (EVERY 28 DAYS)
     Route: 030
     Dates: start: 20140509, end: 20140509
  2. SANDOSTATIN LAR DEPOT [Suspect]
     Active Substance: OCTREOTIDE ACETATE
     Dosage: 30 MG, EVERY 4 WEEKS
     Route: 030
     Dates: start: 20151015
  3. SANDOSTATIN LAR DEPOT [Suspect]
     Active Substance: OCTREOTIDE ACETATE
     Dosage: 30 MG, EVERY 4 WEEKS
     Route: 030
     Dates: start: 20151102
  4. MEDROXY [Concomitant]
     Active Substance: MEDROXYPROGESTERONE ACETATE
     Indication: PRODUCT USED FOR UNKNOWN INDICATION
     Dosage: 2.5 MG, QD
     Route: 048
  5. ESTRADOT [Concomitant]
     Active Substance: ESTRADIOL
     Indication: PRODUCT USED FOR UNKNOWN INDICATION
     Dosage: 75 UG, Q2W (TWICE/WEEK)
     Route: 065
  6. SANDOSTATIN LAR DEPOT [Suspect]
     Active Substance: OCTREOTIDE ACETATE
     Dosage: 20 MG, EVERY 4 WEEKS
     Route: 030
     Dates: start: 20150529
  7. SANDOSTATIN [Suspect]
     Active Substance: OCTREOTIDE ACETATE
  8. SYNTHROID [Concomitant]
     Active Substance: LEVOTHYROXINE SODIUM
     Dosage: 1.5 MG, UNK
     Route: 048
  9. SANDOSTATIN LAR DEPOT [Suspect]
     Active Substance: OCTREOTIDE ACETATE
     Dosage: 10 MG, Q4W
     Route: 030
     Dates: start: 20200813
  10. SANDOSTATIN [Suspect]
     Active Substance: OCTREOTIDE ACETATE
  11. SYNTHROID [Concomitant]
     Active Substance: LEVOTHYROXINE SODIUM
     Indication: PRODUCT USED FOR UNKNOWN INDICATION
     Dosage: 0.75 MG, QD
     Route: 048
     Dates: start: 2017
  12. SYNTHROID [Concomitant]
     Active Substance: LEVOTHYROXINE SODIUM
     Dosage: 1 MG, QD
     Route: 048
     Dates: start: 20180221
  13. SANDOSTATIN LAR DEPOT [Suspect]
     Active Substance: OCTREOTIDE ACETATE
     Indication: ADENOMA BENIGN
     Dosage: 30 MG, Q4W EVERY 4 WEEK
     Route: 030
     Dates: start: 20131023
  14. VITAMIN D [Concomitant]
     Active Substance: VITAMIN D NOS
     Indication: PRODUCT USED FOR UNKNOWN INDICATION
     Dosage: 1000 U, QD
     Route: 048
  15. SYNTHROID [Concomitant]
     Active Substance: LEVOTHYROXINE SODIUM
     Dosage: 1.37 MG, QD
     Route: 048
  16. SYNTHROID [Concomitant]
     Active Substance: LEVOTHYROXINE SODIUM
     Dosage: 112 UG, UNK
     Route: 065
  17. CYTOMEL [Suspect]
     Active Substance: LIOTHYRONINE SODIUM
     Indication: PRODUCT USED FOR UNKNOWN INDICATION
     Dosage: UNK, BID
     Route: 065
  18. TAPAZOL [Concomitant]
     Indication: PRODUCT USED FOR UNKNOWN INDICATION
     Dosage: UNK
     Route: 065
     Dates: end: 20131126
  19. SYNTHROID [Concomitant]
     Active Substance: LEVOTHYROXINE SODIUM
     Dosage: 1.37 MG, QD
     Route: 048
  20. SANDOSTATIN LAR DEPOT [Suspect]
     Active Substance: OCTREOTIDE ACETATE
     Dosage: 20 MG, QMO
     Route: 030
     Dates: start: 20181001
  21. SANDOSTATIN [Suspect]
     Active Substance: OCTREOTIDE ACETATE
     Indication: ADENOMA BENIGN
     Dosage: UNK (ONCE/SINGLE)
     Route: 058
     Dates: start: 20131017, end: 20131017

REACTIONS (43)
  - Infection [Unknown]
  - Stress [Unknown]
  - Pulse abnormal [Unknown]
  - Abdominal distension [Recovered/Resolved]
  - Injection site mass [Unknown]
  - Musculoskeletal stiffness [Unknown]
  - Body temperature decreased [Unknown]
  - Cough [Recovering/Resolving]
  - Fatigue [Unknown]
  - Abdominal pain [Recovered/Resolved]
  - Diarrhoea [Recovered/Resolved]
  - Myalgia [Unknown]
  - Chills [Recovered/Resolved]
  - Nasopharyngitis [Recovering/Resolving]
  - Nasal congestion [Recovering/Resolving]
  - Rhinorrhoea [Recovering/Resolving]
  - Vomiting [Recovered/Resolved]
  - Pituitary tumour [Unknown]
  - Gastroenteritis [Recovered/Resolved]
  - Productive cough [Not Recovered/Not Resolved]
  - Sputum discoloured [Not Recovered/Not Resolved]
  - Nausea [Recovered/Resolved]
  - Injection site pain [Unknown]
  - Diarrhoea [Unknown]
  - Neoplasm progression [Unknown]
  - Flatulence [Unknown]
  - Hypothyroidism [Not Recovered/Not Resolved]
  - Chalazion [Unknown]
  - Blood pressure increased [Unknown]
  - Vomiting [Recovered/Resolved]
  - Asthenia [Unknown]
  - Vomiting [Unknown]
  - Anaemia [Unknown]
  - Gastric dilatation [Unknown]
  - Frequent bowel movements [Unknown]
  - Insulin-like growth factor increased [Unknown]
  - Oropharyngeal pain [Recovered/Resolved]
  - Gastrointestinal disorder [Unknown]
  - Nausea [Recovered/Resolved]
  - Adenoma benign [Unknown]
  - Nausea [Unknown]
  - Needle issue [Unknown]
  - Blood glucose decreased [Recovered/Resolved]

NARRATIVE: CASE EVENT DATE: 20131023
